FAERS Safety Report 6164380-1 (Version None)
Quarter: 2009Q2

REPORT INFORMATION
  Report Type: 
  Country: None (occurrence: None)
  Receive Date: 20090421
  Receipt Date: 20090411
  Transmission Date: 20091009
  Serious: Yes (Other)
  Sender: FDA-Public Use
  Company Number: 2009US000802

PATIENT
  Age: 82 Year
  Sex: Female

DRUGS (9)
  1. LEXISCAN [Suspect]
     Indication: SCAN MYOCARDIAL PERFUSION
     Dosage: 0.4 MG, TOTAL DOSE, IV NOS
     Route: 042
     Dates: start: 20090309, end: 20090309
  2. SYNTHROID [Concomitant]
  3. ARICEPT [Concomitant]
  4. LOPRESSOR [Concomitant]
  5. BENAZEPRIL HYDROCHLORIDE [Concomitant]
  6. ZOCOR [Concomitant]
  7. ALPRAZOLAM [Concomitant]
  8. NAMENDA [Concomitant]
  9. DIVALPROEX SODIUM [Concomitant]

REACTIONS (11)
  - ABDOMINAL PAIN [None]
  - ATRIOVENTRICULAR BLOCK COMPLETE [None]
  - BRADYCARDIA [None]
  - CAROTID ARTERY STENOSIS [None]
  - HYPERTENSION [None]
  - NAUSEA [None]
  - NODAL RHYTHM [None]
  - SUPRAVENTRICULAR EXTRASYSTOLES [None]
  - SYNCOPE [None]
  - UNRESPONSIVE TO STIMULI [None]
  - VENTRICULAR EXTRASYSTOLES [None]
